FAERS Safety Report 14374779 (Version 1)
Quarter: 2018Q1

REPORT INFORMATION
  Report Type: Spontaneous
  Country: CZ (occurrence: CZ)
  Receive Date: 20180111
  Receipt Date: 20180111
  Transmission Date: 20180509
  Serious: Yes (Hospitalization)
  Sender: FDA-Public Use
  Company Number: CZ-CIPLA LTD.-2017CZ30981

PATIENT

DRUGS (21)
  1. MIDAZOLAM [Suspect]
     Active Substance: MIDAZOLAM HYDROCHLORIDE
     Indication: SEDATION
     Dosage: UNK
     Route: 065
  2. CODEINE [Interacting]
     Active Substance: CODEINE
     Dosage: UNK
     Route: 065
  3. PAROXETINE. [Interacting]
     Active Substance: PAROXETINE
     Dosage: 60 MG, PER DAY
     Route: 065
  4. SUFENTANIL [Interacting]
     Active Substance: SUFENTANIL
     Indication: SEDATION
     Dosage: UNK
     Route: 065
  5. MELOXICAM. [Concomitant]
     Active Substance: MELOXICAM
     Indication: ANALGESIC THERAPY
     Dosage: UNK
     Route: 065
  6. MIDAZOLAM [Suspect]
     Active Substance: MIDAZOLAM HYDROCHLORIDE
     Dosage: 15 MG, PER HOUR
     Route: 065
  7. ACETAMINOPHEN. [Suspect]
     Active Substance: ACETAMINOPHEN
     Indication: PYREXIA
     Dosage: UNK
     Route: 065
  8. TRAZODONE [Interacting]
     Active Substance: TRAZODONE HYDROCHLORIDE
     Dosage: 300 MG, PER DAY
     Route: 065
  9. INDOMETHACIN. [Concomitant]
     Active Substance: INDOMETHACIN
     Indication: ANALGESIC THERAPY
     Dosage: UNK
     Route: 065
  10. MIDAZOLAM [Suspect]
     Active Substance: MIDAZOLAM HYDROCHLORIDE
     Dosage: UNK, 10-15 MG/HOUR
     Route: 065
  11. TRAMADOL. [Interacting]
     Active Substance: TRAMADOL
     Indication: ANALGESIC THERAPY
     Dosage: UNK
     Route: 065
  12. CHLORPROTHIXEN [Suspect]
     Active Substance: CHLORPROTHIXENE HYDROCHLORIDE
     Dosage: 50 MG, PER DAY
     Route: 065
  13. BUDESONIDE, FORMOTEROL [Concomitant]
     Indication: ASTHMA
     Dosage: UNK
     Route: 055
  14. HYDROXYZINE [Suspect]
     Active Substance: HYDROXYZINE HYDROCHLORIDE
     Indication: ANXIOLYTIC THERAPY
     Dosage: UNK
     Route: 065
  15. BROMAZEPAM [Suspect]
     Active Substance: BROMAZEPAM
     Dosage: 2 MG, PER DAY
     Route: 065
  16. PIPERACILLIN/ TAZOBACTUM [Suspect]
     Active Substance: PIPERACILLIN SODIUM\TAZOBACTAM SODIUM
     Indication: ANTIBIOTIC THERAPY
     Dosage: UNK
     Route: 065
  17. METOCLOPRAMIDE. [Interacting]
     Active Substance: METOCLOPRAMIDE
     Dosage: UNK
     Route: 065
  18. SUFENTANIL [Interacting]
     Active Substance: SUFENTANIL
     Dosage: 10 ?G, PER HOUR
     Route: 065
  19. LEVOFLOXACIN. [Suspect]
     Active Substance: LEVOFLOXACIN
     Indication: ANTIBIOTIC THERAPY
     Dosage: UNK
     Route: 065
  20. ACETAMINOPHEN. [Suspect]
     Active Substance: ACETAMINOPHEN
     Dosage: 4 G, PER DAY
     Route: 065
  21. IVABRADINE HYDROCHLORIDE [Concomitant]
     Active Substance: IVABRADINE HYDROCHLORIDE
     Indication: SINUS TACHYCARDIA
     Dosage: 10 MG, QD
     Route: 065

REACTIONS (7)
  - Serotonin syndrome [Unknown]
  - Circulatory collapse [Unknown]
  - Drug interaction [Unknown]
  - Drug ineffective [Unknown]
  - Pneumonia fungal [Unknown]
  - Metabolic acidosis [Unknown]
  - Rhabdomyolysis [Unknown]
